FAERS Safety Report 20636009 (Version 1)
Quarter: 2022Q1

REPORT INFORMATION
  Report Type: Spontaneous
  Country: US (occurrence: None)
  Receive Date: 20220324
  Receipt Date: 20220324
  Transmission Date: 20220423
  Serious: No
  Sender: FDA-Public Use
  Company Number: None

PATIENT
  Age: 38 Year
  Sex: Male
  Weight: 61.70 kg

DRUGS (2)
  1. AVSOLA [Suspect]
     Active Substance: INFLIXIMAB-AXXQ
     Indication: Crohn^s disease
     Dosage: OTHER FREQUENCY : 140ML/HR X 2 HOURS;?
     Route: 042
     Dates: start: 20220318, end: 20220318
  2. Sodium Chloride 0.9% 250ML [Concomitant]
     Dates: start: 20220318, end: 20220318

REACTIONS (3)
  - Chest discomfort [None]
  - Dyspnoea [None]
  - Infusion related reaction [None]

NARRATIVE: CASE EVENT DATE: 20220318
